FAERS Safety Report 18691069 (Version 1)
Quarter: 2021Q1

REPORT INFORMATION
  Report Type: Spontaneous
  Country: US (occurrence: US)
  Receive Date: 20210101
  Receipt Date: 20210101
  Transmission Date: 20210419
  Serious: No
  Sender: FDA-Public Use
  Company Number: US-LUPIN PHARMACEUTICALS INC.-2020-01589

PATIENT
  Sex: Female
  Weight: 70.31 kg

DRUGS (1)
  1. SERTRALINE HYDROCHLORIDE TABLETS USP, 100 MG [Suspect]
     Active Substance: SERTRALINE HYDROCHLORIDE
     Indication: ANXIETY DISORDER
     Dosage: 150 MILLIGRAM, QD (1.5 TABLET DAILY)
     Route: 048

REACTIONS (3)
  - Withdrawal syndrome [Unknown]
  - Panic attack [Unknown]
  - Product substitution issue [Unknown]
